FAERS Safety Report 22042810 (Version 1)
Quarter: 2023Q1

REPORT INFORMATION
  Report Type: Report from Study
  Country: BR (occurrence: BR)
  Receive Date: 20230228
  Receipt Date: 20230228
  Transmission Date: 20230417
  Serious: Yes (Other)
  Sender: FDA-Public Use
  Company Number: BR-CELLTRION INC.-2023BR004473

PATIENT

DRUGS (2)
  1. INFLIXIMAB [Suspect]
     Active Substance: INFLIXIMAB
     Indication: Crohn^s disease
     Dosage: UNK, 2 AMPOULES EVERY 4 WEEKS
     Route: 042
     Dates: start: 20220928
  2. AZATHIOPRINE [Concomitant]
     Active Substance: AZATHIOPRINE
     Indication: Crohn^s disease
     Dosage: 50 MG, 1 PILL PER DAY, START: 10 YEARS AGO// STOP: STILL IN USE
     Route: 048

REACTIONS (9)
  - Crohn^s disease [Unknown]
  - Abdominal pain upper [Unknown]
  - Abdominal pain [Unknown]
  - Diarrhoea [Unknown]
  - Muscle spasms [Unknown]
  - Infection [Unknown]
  - Fatigue [Unknown]
  - Drug ineffective [Not Recovered/Not Resolved]
  - Off label use [Unknown]

NARRATIVE: CASE EVENT DATE: 20221028
